FAERS Safety Report 25877751 (Version 2)
Quarter: 2025Q4

REPORT INFORMATION
  Report Type: Report from Study
  Country: EU (occurrence: EU)
  Receive Date: 20251003
  Receipt Date: 20251017
  Transmission Date: 20260117
  Serious: Yes (Hospitalization, Other)
  Sender: JOHNSON AND JOHNSON
  Company Number: EU-JNJFOC-20250810115

PATIENT
  Age: 82 Year
  Sex: Male
  Weight: 68.8 kg

DRUGS (3)
  1. TECLISTAMAB [Suspect]
     Active Substance: TECLISTAMAB
     Indication: Plasma cell myeloma
     Route: 065
     Dates: start: 20240301, end: 20240301
  2. TECLISTAMAB [Suspect]
     Active Substance: TECLISTAMAB
     Route: 065
     Dates: start: 20240303, end: 20240303
  3. TECLISTAMAB [Suspect]
     Active Substance: TECLISTAMAB
     Route: 065
     Dates: start: 20240305, end: 20240305

REACTIONS (7)
  - Enterococcal infection [Recovered/Resolved]
  - Cytokine release syndrome [Recovered/Resolved]
  - Pleural effusion [Recovered/Resolved]
  - Asthenia [Unknown]
  - Fatigue [Not Recovered/Not Resolved]
  - Oedema peripheral [Not Recovered/Not Resolved]
  - Steal syndrome [Not Recovered/Not Resolved]

NARRATIVE: CASE EVENT DATE: 20240301
